FAERS Safety Report 4952032-2 (Version None)
Quarter: 2006Q1

REPORT INFORMATION
  Report Type: 
  Country: None (occurrence: None)
  Receive Date: 20060322
  Receipt Date: 20060322
  Transmission Date: 20060701
  Serious: No
  Sender: FDA-Public Use
  Company Number: None

PATIENT
  Age: 79 Year
  Sex: Male
  Weight: 53.0709 kg

DRUGS (1)
  1. MORPHINE [Suspect]
     Indication: PROSTATE CANCER
     Dosage: 6 MG/HR IV
     Route: 042
     Dates: start: 20051129, end: 20051130

REACTIONS (2)
  - INFUSION RELATED REACTION [None]
  - LETHARGY [None]
